FAERS Safety Report 17019800 (Version 1)
Quarter: 2019Q4

REPORT INFORMATION
  Report Type: Spontaneous
  Country: FR (occurrence: FR)
  Receive Date: 20191112
  Receipt Date: 20191112
  Transmission Date: 20200122
  Serious: Yes (Other)
  Sender: FDA-Public Use
  Company Number: FR-AUROBINDO-AUR-APL-2019-072037

PATIENT
  Sex: Male

DRUGS (2)
  1. OXALIPLATIN. [Suspect]
     Active Substance: OXALIPLATIN
     Indication: ADENOCARCINOMA OF COLON
     Dosage: 1 DOSAGE FORM, CYCLICAL
     Route: 042
     Dates: start: 20190116, end: 20190522
  2. FLUOROURACILE [Suspect]
     Active Substance: FLUOROURACIL
     Indication: ADENOCARCINOMA OF COLON
     Dosage: 1 DOSAGE FORM, CYCLICAL
     Route: 042
     Dates: start: 20180116, end: 20180619

REACTIONS (3)
  - Nystagmus [Not Recovered/Not Resolved]
  - Neuropathy peripheral [Not Recovered/Not Resolved]
  - Vestibular neuronitis [Not Recovered/Not Resolved]

NARRATIVE: CASE EVENT DATE: 201804
